FAERS Safety Report 5670443-7 (Version None)
Quarter: 2008Q1

REPORT INFORMATION
  Report Type: 
  Country: None (occurrence: None)
  Receive Date: 20080318
  Receipt Date: 20080304
  Transmission Date: 20080703
  Serious: Yes (Other)
  Sender: FDA-Public Use
  Company Number: CA-ELI_LILLY_AND_COMPANY-CA200802005275

PATIENT
  Sex: Male

DRUGS (7)
  1. CIALIS [Suspect]
     Indication: ERECTILE DYSFUNCTION
     Dosage: 20 MG, UNK
  2. CIALIS [Suspect]
     Dosage: 40 MG, UNK
  3. CIALIS [Suspect]
     Dosage: 5 MG, DAILY (1/D)
  4. OXYCOCET [Concomitant]
  5. OXYCONTIN [Concomitant]
     Dosage: 40 MG, 2/D
  6. BACLOFEN [Concomitant]
     Dosage: 20 MG, EACH EVENING
  7. MOBIC [Concomitant]

REACTIONS (2)
  - SURGERY [None]
  - THERAPEUTIC RESPONSE DECREASED [None]
